FAERS Safety Report 9181643 (Version 1)
Quarter: 2013Q1

REPORT INFORMATION
  Report Type: Spontaneous
  Country: US (occurrence: None)
  Receive Date: 20130321
  Receipt Date: 20130321
  Transmission Date: 20140127
  Serious: Yes (Disabling)
  Sender: FDA-Public Use
  Company Number: None

PATIENT
  Age: 41 Year
  Sex: Female
  Weight: 48.08 kg

DRUGS (1)
  1. HALDOL [Suspect]
     Dosage: 500 BID PO
     Route: 048
     Dates: start: 20121015, end: 20121101

REACTIONS (2)
  - Aggression [None]
  - Abnormal behaviour [None]
